FAERS Safety Report 6082958-0 (Version None)
Quarter: 2009Q1

REPORT INFORMATION
  Report Type: 
  Country: None (occurrence: None)
  Receive Date: 20090218
  Receipt Date: 20090216
  Transmission Date: 20090719
  Serious: No
  Sender: FDA-Public Use
  Company Number: US-B.I. PHARMACEUTICALS,INC./RIDGEFIELD-2009-BP-01934BP

PATIENT
  Age: 2 Year
  Sex: Male

DRUGS (1)
  1. ZANTAC 150 [Suspect]
     Dosage: ACCIDENTALLY PLACED A ZANTAC TABLET IN HIS MOUTH
     Route: 048

REACTIONS (1)
  - ACCIDENTAL OVERDOSE [None]
